FAERS Safety Report 17308693 (Version 1)
Quarter: 2020Q1

REPORT INFORMATION
  Report Type: Spontaneous
  Country: US (occurrence: US)
  Receive Date: 20200123
  Receipt Date: 20200123
  Transmission Date: 20200409
  Serious: No
  Sender: FDA-Public Use
  Company Number: US-BAYER-2020-012248

PATIENT
  Age: 56 Year
  Sex: Female

DRUGS (3)
  1. MIRALAX [Suspect]
     Active Substance: POLYETHYLENE GLYCOL 3350
     Indication: BOWEL MOVEMENT IRREGULARITY
     Dosage: 0.5 DF, QD
     Route: 048
     Dates: start: 2019
  2. FISH OIL [Concomitant]
     Active Substance: FISH OIL
     Dosage: UNK
  3. MIRALAX [Suspect]
     Active Substance: POLYETHYLENE GLYCOL 3350
     Indication: BOWEL MOVEMENT IRREGULARITY
     Dosage: 0.5 DF

REACTIONS (8)
  - Incorrect dose administered [Unknown]
  - Prescribed underdose [Unknown]
  - Malaise [Recovering/Resolving]
  - Nausea [Recovered/Resolved]
  - Gastroenteritis viral [Unknown]
  - Malaise [Recovered/Resolved]
  - Product odour abnormal [None]
  - Nausea [Recovering/Resolving]

NARRATIVE: CASE EVENT DATE: 20200120
